FAERS Safety Report 7267548-6 (Version None)
Quarter: 2011Q1

REPORT INFORMATION
  Report Type: 
  Country: None (occurrence: None)
  Receive Date: 20110120
  Receipt Date: 19980309
  Transmission Date: 20110831
  Serious: Yes (Hospitalization)
  Sender: FDA-Public Use
  Company Number: LEO-2011-00035

PATIENT
  Age: 70 Year

DRUGS (1)
  1. INNOHEP [Suspect]
     Indication: THROMBOSIS

REACTIONS (1)
  - NO THERAPEUTIC RESPONSE [None]
